FAERS Safety Report 24361271 (Version 2)
Quarter: 2024Q4

REPORT INFORMATION
  Report Type: Spontaneous
  Country: US (occurrence: US)
  Receive Date: 20240925
  Receipt Date: 20241024
  Transmission Date: 20250114
  Serious: No
  Sender: ABBVIE
  Company Number: US-ABBVIE-5926892

PATIENT
  Age: 37 Year
  Sex: Male

DRUGS (14)
  1. LEXAPRO [Suspect]
     Active Substance: ESCITALOPRAM OXALATE
     Indication: Product used for unknown indication
     Route: 065
     Dates: end: 2024
  2. BUPROPION [Suspect]
     Active Substance: BUPROPION
     Indication: Product used for unknown indication
     Route: 065
     Dates: end: 20240512
  3. LUMRYZ [Suspect]
     Active Substance: SODIUM OXYBATE
     Indication: Narcolepsy
     Dosage: NIGHTLY
     Route: 048
     Dates: start: 202406, end: 20240612
  4. LUMRYZ [Suspect]
     Active Substance: SODIUM OXYBATE
     Indication: Narcolepsy
     Dosage: NIGHTLY?LAST ADMIN DATE -05-2024
     Route: 048
     Dates: start: 20240510
  5. LUMRYZ [Suspect]
     Active Substance: SODIUM OXYBATE
     Indication: Narcolepsy
     Dosage: NIGHTLY
     Route: 048
     Dates: start: 202405, end: 202406
  6. LUMRYZ [Suspect]
     Active Substance: SODIUM OXYBATE
     Indication: Narcolepsy
     Dosage: NIGHTLY
     Route: 048
     Dates: start: 202406
  7. ZOLOFT [Suspect]
     Active Substance: SERTRALINE HYDROCHLORIDE
     Indication: Product used for unknown indication
     Dosage: FORM STRENGTH 50 MG
     Route: 065
     Dates: end: 20240512
  8. MINOXIDIL [Concomitant]
     Active Substance: MINOXIDIL
     Indication: Product used for unknown indication
     Dates: end: 20240612
  9. MINOXIDIL [Concomitant]
     Active Substance: MINOXIDIL
     Indication: Product used for unknown indication
     Dates: start: 202406
  10. FINASTERIDE [Concomitant]
     Active Substance: FINASTERIDE
     Indication: Product used for unknown indication
     Dates: end: 20240612
  11. FINASTERIDE [Concomitant]
     Active Substance: FINASTERIDE
     Indication: Product used for unknown indication
     Dates: start: 202406
  12. MODAFINIL [Concomitant]
     Active Substance: MODAFINIL
     Indication: Product used for unknown indication
  13. ADDERALL [Concomitant]
     Active Substance: AMPHETAMINE ASPARTATE\AMPHETAMINE SULFATE\DEXTROAMPHETAMINE SACCHARATE\DEXTROAMPHETAMINE SULFATE
     Indication: Product used for unknown indication
     Dates: end: 20240612
  14. PROPRANOLOL [Suspect]
     Active Substance: PROPRANOLOL HYDROCHLORIDE
     Indication: Heart rate increased
     Route: 065

REACTIONS (12)
  - Palpitations [Not Recovered/Not Resolved]
  - Heart rate increased [Recovered/Resolved]
  - Feeling abnormal [Unknown]
  - Adverse drug reaction [Unknown]
  - Depression [Recovering/Resolving]
  - Fatigue [Unknown]
  - Headache [Not Recovered/Not Resolved]
  - Musculoskeletal stiffness [Unknown]
  - Drug interaction [Unknown]
  - Initial insomnia [Not Recovered/Not Resolved]
  - Confusional state [Recovered/Resolved]
  - Brain fog [Recovered/Resolved]

NARRATIVE: CASE EVENT DATE: 20240101
